FAERS Safety Report 5474524-2 (Version None)
Quarter: 2007Q3

REPORT INFORMATION
  Report Type: 
  Country: None (occurrence: None)
  Receive Date: 20070928
  Receipt Date: 20070928
  Transmission Date: 20080115
  Serious: Yes (Hospitalization)
  Sender: FDA-Public Use
  Company Number: None

PATIENT
  Sex: Female
  Weight: 63.63 kg

DRUGS (2)
  1. TAXOTERE [Suspect]
     Dosage: 117 MG
  2. GEMCITABINE HCL [Suspect]
     Dosage: 2004 MG

REACTIONS (12)
  - ABDOMINAL PAIN LOWER [None]
  - BACK PAIN [None]
  - CONDITION AGGRAVATED [None]
  - CONSTIPATION [None]
  - FALL [None]
  - HYPERTENSION [None]
  - MAJOR DEPRESSION [None]
  - MALIGNANT NEOPLASM PROGRESSION [None]
  - MENTAL STATUS CHANGES [None]
  - METASTASES TO CENTRAL NERVOUS SYSTEM [None]
  - METASTASES TO LIVER [None]
  - METASTASES TO LYMPH NODES [None]
